FAERS Safety Report 10996455 (Version 1)
Quarter: 2015Q2

REPORT INFORMATION
  Report Type: Spontaneous
  Country: US (occurrence: US)
  Receive Date: 20150408
  Receipt Date: 20150408
  Transmission Date: 20150821
  Serious: Yes (Life-Threatening)
  Sender: FDA-Public Use
  Company Number: US-ROCHE-1559568

PATIENT
  Sex: Male

DRUGS (4)
  1. CELLCEPT [Suspect]
     Active Substance: MYCOPHENOLATE MOFETIL\MYCOPHENOLATE MOFETIL HYDROCHLORIDE
     Indication: MYASTHENIA GRAVIS
     Dosage: 2000MG DAILY
     Route: 065
     Dates: end: 201401
  2. PREDNISONE. [Concomitant]
     Active Substance: PREDNISONE
     Route: 065
  3. MYCOPHENOLATE MOFETIL. [Suspect]
     Active Substance: MYCOPHENOLATE MOFETIL
     Indication: MYASTHENIA GRAVIS
     Dosage: 2000MG DAILY
     Route: 042
     Dates: start: 201401
  4. PYRIDOSTIGMINE BROMIDE. [Concomitant]
     Active Substance: PYRIDOSTIGMINE BROMIDE
     Indication: MYASTHENIA GRAVIS
     Dosage: 1/2 TABLET
     Route: 065

REACTIONS (8)
  - Diplopia [Unknown]
  - Asthenopia [Unknown]
  - Eyelid ptosis [Unknown]
  - Eustachian tube dysfunction [Unknown]
  - Eye pain [Unknown]
  - Respiratory arrest [Recovered/Resolved]
  - Drug ineffective [Unknown]
  - Muscular weakness [Unknown]
